FAERS Safety Report 13853109 (Version 13)
Quarter: 2024Q2

REPORT INFORMATION
  Report Type: Spontaneous
  Country: CA (occurrence: CA)
  Receive Date: 20170810
  Receipt Date: 20240402
  Transmission Date: 20240716
  Serious: Yes (Other)
  Sender: FDA-Public Use
  Company Number: CA-AUROBINDO-AUR-APL-2017-38712

PATIENT
  Age: 84 Year
  Sex: Female
  Weight: 90.718 kg

DRUGS (76)
  1. BETAHISTINE [Suspect]
     Active Substance: BETAHISTINE
     Indication: Vertigo
     Dosage: 8 MILLIGRAM, ONCE A DAY
     Route: 065
  2. BETAHISTINE [Suspect]
     Active Substance: BETAHISTINE
     Dosage: 16 MILLIGRAM, DAILY (8 MILLIGRAM, TWO TIMES A DAY)
     Route: 065
  3. BETAHISTINE [Suspect]
     Active Substance: BETAHISTINE
     Dosage: 24 MILLIGRAM, DAILY  (8 MILLIGRAM, 3 TIMES A DAY)
     Route: 065
  4. CITALOPRAM [Suspect]
     Active Substance: CITALOPRAM\CITALOPRAM HYDROBROMIDE
     Indication: Depressed mood
     Dosage: 5 MILLIGRAM, ONCE A DAY
     Route: 065
  5. CITALOPRAM [Suspect]
     Active Substance: CITALOPRAM\CITALOPRAM HYDROBROMIDE
     Dosage: 1 DOSAGE FORM, ONCE A DAY
     Route: 065
  6. CANDESARTAN [Suspect]
     Active Substance: CANDESARTAN
     Indication: Hypertension
     Dosage: 4 MILLIGRAM, ONCE A DAY
     Route: 065
  7. CANDESARTAN [Suspect]
     Active Substance: CANDESARTAN
     Indication: Hypertension
     Dosage: 4 MILLIGRAM, ONCE A DAY
     Route: 048
  8. CANDESARTAN [Suspect]
     Active Substance: CANDESARTAN
     Dosage: 4 DOSAGE FORM, ONCE A DAY
     Route: 065
  9. MIRTAZAPINE [Suspect]
     Active Substance: MIRTAZAPINE
     Indication: Depressed mood
     Dosage: 7.5 MG, ONCE A DAY
     Route: 065
  10. MIRTAZAPINE [Suspect]
     Active Substance: MIRTAZAPINE
     Indication: Depression
  11. PAROXETINE [Suspect]
     Active Substance: PAROXETINE
     Indication: Depression
     Dosage: 20 MILLIGRAM, ONCE A DAY
     Route: 048
  12. PAROXETINE [Suspect]
     Active Substance: PAROXETINE
     Dosage: 50 MILLIGRAM
     Route: 048
  13. PANTOPRAZOLE [Suspect]
     Active Substance: PANTOPRAZOLE
     Indication: Nausea
     Dosage: 40 MILLIGRAM, ONCE A DAY
     Route: 048
  14. PANTOPRAZOLE [Suspect]
     Active Substance: PANTOPRAZOLE
     Dosage: 1 DOSAGE FORM, ONCE A DAY
     Route: 048
  15. ROSUVASTATIN [Suspect]
     Active Substance: ROSUVASTATIN
     Indication: Haemorrhagic stroke
     Dosage: 20 MILLIGRAM, ONCE A DAY
     Route: 065
  16. BETAHISTINE HYDROCHLORIDE [Suspect]
     Active Substance: BETAHISTINE HYDROCHLORIDE
     Indication: Vertigo
     Dosage: 8 MILLIGRAM, 2 /WEEKS
     Route: 065
  17. BETAHISTINE HYDROCHLORIDE [Suspect]
     Active Substance: BETAHISTINE HYDROCHLORIDE
     Dosage: 8 MILLIGRAM, 3 EVERY 1 DAY
     Route: 065
  18. BETAHISTINE HYDROCHLORIDE [Suspect]
     Active Substance: BETAHISTINE HYDROCHLORIDE
     Dosage: 8 MILLIGRAM, TWO TIMES A DAY
     Route: 065
  19. BETAHISTINE HYDROCHLORIDE [Suspect]
     Active Substance: BETAHISTINE HYDROCHLORIDE
     Dosage: 24 MILLIGRAM, ONCE A DAY (8MG 3 TIMES A DAY)
     Route: 065
  20. BETAHISTINE HYDROCHLORIDE [Suspect]
     Active Substance: BETAHISTINE HYDROCHLORIDE
     Dosage: 8 MILLIGRAM, ONCE A DAY
     Route: 065
  21. BETAHISTINE HYDROCHLORIDE [Suspect]
     Active Substance: BETAHISTINE HYDROCHLORIDE
     Dosage: UNK
     Route: 065
  22. BISOPROLOL [Suspect]
     Active Substance: BISOPROLOL\BISOPROLOL FUMARATE
     Indication: Product used for unknown indication
     Dosage: 1.25 MILLIGRAM, ONCE A DAY
     Route: 065
  23. BISOPROLOL [Suspect]
     Active Substance: BISOPROLOL\BISOPROLOL FUMARATE
     Dosage: 1 DOSAGE FORM, ONCE A DAY
     Route: 065
  24. CANDESARTAN CILEXETIL\HYDROCHLOROTHIAZIDE [Suspect]
     Active Substance: CANDESARTAN CILEXETIL\HYDROCHLOROTHIAZIDE
     Indication: Hypertension
     Dosage: 1 DOSAGE FORM, ONCE A DAY
     Route: 065
  25. CANDESARTAN CILEXETIL\HYDROCHLOROTHIAZIDE [Suspect]
     Active Substance: CANDESARTAN CILEXETIL\HYDROCHLOROTHIAZIDE
     Dosage: 4 MILLIGRAM, ONCE A DAY
     Route: 065
  26. CITALOPRAM HYDROBROMIDE [Suspect]
     Active Substance: CITALOPRAM HYDROBROMIDE
     Indication: Depressed mood
     Dosage: 5 MG, ONCE A DAY
     Route: 065
  27. CITALOPRAM HYDROBROMIDE [Suspect]
     Active Substance: CITALOPRAM HYDROBROMIDE
     Indication: Depression
     Dosage: UNK, ONCE A DAY
     Route: 065
  28. DIMENHYDRINATE [Suspect]
     Active Substance: DIMENHYDRINATE
     Indication: Nausea
     Dosage: 50 MILLIGRAM,A S REQUIRED
     Route: 065
  29. CETIRIZINE HYDROCHLORIDE [Suspect]
     Active Substance: CETIRIZINE HYDROCHLORIDE
     Indication: Eye pruritus
     Dosage: 20 MILLIGRAM, ONCE A DAY
     Route: 065
  30. CETIRIZINE HYDROCHLORIDE [Suspect]
     Active Substance: CETIRIZINE HYDROCHLORIDE
     Dosage: UNK
     Route: 065
  31. TIMOLOL [Suspect]
     Active Substance: TIMOLOL
     Indication: Glaucoma
     Dosage: 0.5 PERCENT
     Route: 047
  32. TIMOLOL [Suspect]
     Active Substance: TIMOLOL
     Dosage: 1 DOSAGE FORM, TWO TIMES A DAY
     Route: 047
  33. VITAMIN D [Suspect]
     Active Substance: VITAMIN D NOS
     Indication: Osteoporosis
     Dosage: 1000 IU, ONCE A DAY
     Route: 065
  34. VITAMIN D [Suspect]
     Active Substance: VITAMIN D NOS
     Dosage: UNK, ONCE A DAY
     Route: 065
  35. VITAMIN D [Suspect]
     Active Substance: VITAMIN D NOS
     Dosage: 1000 DOSAGE FORM, ONCE A DAY
     Route: 065
  36. LEVOTHYROXINE SODIUM [Suspect]
     Active Substance: LEVOTHYROXINE SODIUM
     Indication: Hypothyroidism
     Dosage: 0.05 MILLIGRAM, ONCE A DAY
     Route: 065
  37. LEVOTHYROXINE SODIUM [Suspect]
     Active Substance: LEVOTHYROXINE SODIUM
     Dosage: 1 DOSAGE FORM, ONCE A DAY
     Route: 065
  38. CARBIDOPA\LEVODOPA [Suspect]
     Active Substance: CARBIDOPA\LEVODOPA
     Indication: Parkinson^s disease
     Dosage: UNK, 3 TIMES A DAY
     Route: 065
  39. CARBIDOPA\LEVODOPA [Suspect]
     Active Substance: CARBIDOPA\LEVODOPA
     Dosage: 3 DOSAGE FORM, ONCE A DAY
     Route: 065
  40. ACTONEL [Suspect]
     Active Substance: RISEDRONATE SODIUM
     Indication: Osteoporosis
     Dosage: 150 MILLIGRAM, ONCE A DAY
     Route: 065
  41. ACTONEL [Suspect]
     Active Substance: RISEDRONATE SODIUM
     Dosage: 150 MILLIGRAM, 1 EVERY MONTH
     Route: 065
  42. ACTONEL [Suspect]
     Active Substance: RISEDRONATE SODIUM
     Dosage: 150 MILLIGRAM
     Route: 065
  43. ACTONEL [Suspect]
     Active Substance: RISEDRONATE SODIUM
     Dosage: 5 MILLIGRAM
     Route: 065
  44. ACTONEL [Suspect]
     Active Substance: RISEDRONATE SODIUM
     Dosage: UNK
     Route: 065
  45. ACTONEL [Suspect]
     Active Substance: RISEDRONATE SODIUM
     Dosage: UNK
     Route: 065
  46. CARBIDOPA\LEVODOPA [Suspect]
     Active Substance: CARBIDOPA\LEVODOPA
     Indication: Parkinson^s disease
     Dosage: UNK, THREE TIMES A DAY
     Route: 065
  47. CARBIDOPA\LEVODOPA [Suspect]
     Active Substance: CARBIDOPA\LEVODOPA
     Dosage: 2 DOSAGE FORM, 3 TIMES A DAY
     Route: 065
  48. CARBIDOPA\LEVODOPA [Suspect]
     Active Substance: CARBIDOPA\LEVODOPA
     Dosage: 1 DOSAGE FORM, ONCE A DAY
     Route: 065
  49. BISOPROLOL FUMARATE [Suspect]
     Active Substance: BISOPROLOL FUMARATE
     Indication: Product used for unknown indication
     Dosage: 1 DOSAGE FORM, ONCE A DAY
     Route: 065
  50. BISOPROLOL FUMARATE [Suspect]
     Active Substance: BISOPROLOL FUMARATE
     Dosage: 1.25 MILLIGRAM, ONCE A DAY
     Route: 065
  51. CETIRIZINE HYDROCHLORIDE [Suspect]
     Active Substance: CETIRIZINE HYDROCHLORIDE
     Indication: Eye pruritus
     Dosage: 20 MILLIGRAM, ONCE A DAY
     Route: 065
  52. CITALOPRAM HYDROBROMIDE [Suspect]
     Active Substance: CITALOPRAM HYDROBROMIDE
     Indication: Depressed mood
     Dosage: UNK, ONCE A DAY
     Route: 065
  53. METOCLOPRAMIDE HYDROCHLORIDE [Suspect]
     Active Substance: METOCLOPRAMIDE HYDROCHLORIDE
     Indication: Diverticulitis
     Dosage: 10 MILLIGRAM, 3 TIMES A DAY
     Route: 065
  54. MIRTAZAPINE [Suspect]
     Active Substance: MIRTAZAPINE
     Indication: Depressed mood
     Dosage: 7.5 MILLIGRAM, ONCE A DAY
     Route: 065
  55. MIRTAZAPINE [Suspect]
     Active Substance: MIRTAZAPINE
     Dosage: 1 DOSAGE FORM, ONCE A DAY
     Route: 065
  56. TRAZODONE HYDROCHLORIDE [Suspect]
     Active Substance: TRAZODONE HYDROCHLORIDE
     Indication: Insomnia
     Dosage: 25 MILLIGRAM
     Route: 065
  57. TRAZODONE HYDROCHLORIDE [Suspect]
     Active Substance: TRAZODONE HYDROCHLORIDE
     Dosage: 50 MILLIGRAM, ONCE A DAY
     Route: 065
  58. CANDESARTAN CILEXETIL [Suspect]
     Active Substance: CANDESARTAN CILEXETIL
     Indication: Hypertension
     Dosage: 4 MILLIGRAM, ONCE A DAY
     Route: 065
  59. RISEDRONATE SODIUM [Suspect]
     Active Substance: RISEDRONATE SODIUM
     Indication: Osteoporosis
     Dosage: 150 MILLIGRAM, ONCE A DAY
     Route: 065
  60. RISEDRONATE SODIUM [Suspect]
     Active Substance: RISEDRONATE SODIUM
     Dosage: 150 MILLIGRAM
     Route: 065
  61. ROSUVASTATIN CALCIUM [Suspect]
     Active Substance: ROSUVASTATIN CALCIUM
     Indication: Haemorrhagic stroke
     Dosage: 20 MILLIGRAM, ONCE A DAY
     Route: 065
  62. TIMOLOL MALEATE [Suspect]
     Active Substance: TIMOLOL MALEATE
     Indication: Glaucoma
     Dosage: 1 DOSAGE FORM, TWO TIMES A DAY
     Route: 047
  63. CARBIDOPA\LEVODOPA [Suspect]
     Active Substance: CARBIDOPA\LEVODOPA
     Indication: Parkinson^s disease
     Dosage: 2 DOSAGE FORM, 3 TIMES A DAY
     Route: 065
  64. ERGOCALCIFEROL [Suspect]
     Active Substance: ERGOCALCIFEROL
     Indication: Osteoporosis
     Dosage: 1000.0 INTERNATIONAL UNIT, ONCE A DAY
     Route: 065
  65. ERGOCALCIFEROL [Suspect]
     Active Substance: ERGOCALCIFEROL
     Dosage: 1 DOSAGE FORM, ONCE A DAY
     Route: 065
  66. BISOPROLOL FUMARATE [Suspect]
     Active Substance: BISOPROLOL FUMARATE
     Indication: Product used for unknown indication
     Dosage: UNK, ONCE A DAY
     Route: 065
  67. BISOPROLOL FUMARATE [Suspect]
     Active Substance: BISOPROLOL FUMARATE
     Indication: Product used for unknown indication
     Dosage: 1.25 MILLIGRAM, ONCE A DAY
     Route: 065
  68. REMERON [Suspect]
     Active Substance: MIRTAZAPINE
     Indication: Depressed mood
     Dosage: 7.5 MILLIGRAM, ONCE A DAY
     Route: 065
  69. SINEMET [Suspect]
     Active Substance: CARBIDOPA\LEVODOPA
     Indication: Parkinson^s disease
     Dosage: UNK
     Route: 065
  70. TIMOLOL [Suspect]
     Active Substance: TIMOLOL
     Indication: Glaucoma
     Dosage: 0.5 PERCENT, TWO TIMES A DAY
     Route: 047
  71. TIMOLOL [Suspect]
     Active Substance: TIMOLOL
     Dosage: 2 DOSAGE FORM, ONCE A DAY
     Route: 047
  72. RISEDRONIC ACID [Suspect]
     Active Substance: RISEDRONIC ACID
     Indication: Osteoporosis
     Dosage: 150 MILLIGRAM
     Route: 065
  73. RISEDRONIC ACID [Suspect]
     Active Substance: RISEDRONIC ACID
     Dosage: 150 MILLIGRAM, ONCE A DAY
     Route: 065
  74. RISEDRONIC ACID [Suspect]
     Active Substance: RISEDRONIC ACID
     Dosage: 150 MILLIGRAM,1  EVERY 1 MONTHS
     Route: 065
  75. PERCOCET [Concomitant]
     Active Substance: ACETAMINOPHEN\OXYCODONE HYDROCHLORIDE
     Indication: Product used for unknown indication
     Dosage: UNK
     Route: 065
  76. RESTORIL [Concomitant]
     Active Substance: TEMAZEPAM
     Indication: Product used for unknown indication
     Dosage: UNK
     Route: 065

REACTIONS (28)
  - Parkinson^s disease [Recovered/Resolved]
  - Hypotension [Recovered/Resolved]
  - Hypersensitivity [Recovered/Resolved]
  - Vitamin B12 decreased [Recovered/Resolved]
  - Vertigo [Recovered/Resolved]
  - Depressed mood [Recovered/Resolved]
  - Abdominal distension [Recovered/Resolved]
  - Loss of personal independence in daily activities [Recovered/Resolved]
  - Eye pruritus [Recovered/Resolved]
  - Fall [Recovered/Resolved]
  - Lacrimation increased [Recovered/Resolved]
  - Decreased appetite [Recovered/Resolved]
  - Dizziness [Recovered/Resolved]
  - Dry mouth [Recovered/Resolved]
  - Constipation [Recovered/Resolved]
  - Fatigue [Recovered/Resolved]
  - Vomiting [Recovered/Resolved]
  - Nausea [Recovered/Resolved]
  - Balance disorder [Recovered/Resolved]
  - Condition aggravated [Recovered/Resolved]
  - Underdose [Not Recovered/Not Resolved]
  - Product use in unapproved indication [Not Recovered/Not Resolved]
  - Incorrect dose administered [Unknown]
  - Drug ineffective [Recovered/Resolved]
  - Product substitution issue [Unknown]
  - Off label use [Not Recovered/Not Resolved]
  - Anxiety [Unknown]
  - Depression [Unknown]
